FAERS Safety Report 16755077 (Version 1)
Quarter: 2019Q3

REPORT INFORMATION
  Report Type: Other
  Country: CZ (occurrence: CZ)
  Receive Date: 20190829
  Receipt Date: 20190829
  Transmission Date: 20191005
  Serious: Yes (Life-Threatening, Hospitalization, Other)
  Sender: FDA-Public Use
  Company Number: CZ-ASTELLAS-2019US034227

PATIENT
  Age: 59 Year
  Sex: Female

DRUGS (15)
  1. EUTHYROX [Concomitant]
     Active Substance: LEVOTHYROXINE SODIUM
     Indication: HYPOTHYROIDISM
     Route: 048
  2. ATROVENT [Concomitant]
     Active Substance: IPRATROPIUM BROMIDE
     Indication: ASTHMA
     Dosage: 0.02 ?G, TWICE DAILY (IN THE MORNING AND EVENING)
     Route: 055
  3. URSOSAN [Concomitant]
     Active Substance: URSODIOL
     Indication: LIVER TRANSPLANT
     Route: 048
  4. HELICID                            /00661201/ [Concomitant]
     Active Substance: OMEPRAZOLE
     Indication: GASTRIC DISORDER
     Route: 048
  5. PREDNISON [Concomitant]
     Active Substance: PREDNISONE
     Indication: LIVER TRANSPLANT
     Dosage: 10 MG, ONCE DAILY (IN THE MORNING)
     Route: 048
  6. CELLCEPT [Concomitant]
     Active Substance: MYCOPHENOLATE MOFETIL\MYCOPHENOLATE MOFETIL HYDROCHLORIDE
     Indication: PRODUCT USED FOR UNKNOWN INDICATION
     Route: 065
  7. MAGNESIUM [Concomitant]
     Active Substance: MAGNESIUM
     Indication: PRODUCT USED FOR UNKNOWN INDICATION
     Route: 065
  8. VALACICLOVIR [Concomitant]
     Active Substance: VALACYCLOVIR HYDROCHLORIDE
     Indication: PRODUCT USED FOR UNKNOWN INDICATION
     Route: 065
  9. EUPHYLLIN                          /00012201/ [Concomitant]
     Indication: PRODUCT USED FOR UNKNOWN INDICATION
     Route: 065
  10. ADVAGRAF [Suspect]
     Active Substance: TACROLIMUS
     Indication: LIVER TRANSPLANT
     Route: 048
  11. ADVAGRAF [Suspect]
     Active Substance: TACROLIMUS
     Route: 048
  12. THIAMIN [Concomitant]
     Active Substance: THIAMINE
     Indication: PRODUCT USED FOR UNKNOWN INDICATION
     Route: 065
  13. SUMETROLIM [Concomitant]
     Active Substance: SULFAMETHOXAZOLE\TRIMETHOPRIM
     Indication: PRODUCT USED FOR UNKNOWN INDICATION
     Dosage: 480 MG, 1-0-0 (MON-WED-FRI)
     Route: 065
  14. ROCALTROL [Concomitant]
     Active Substance: CALCITRIOL
     Indication: PRODUCT USED FOR UNKNOWN INDICATION
     Dosage: 0.25 MG, ONCE DAILY
     Route: 065
  15. CALCIUM EFFERVESCENS               /07357001/ [Concomitant]
     Indication: PRODUCT USED FOR UNKNOWN INDICATION
     Route: 065

REACTIONS (8)
  - Seizure [Unknown]
  - Tonic clonic movements [Unknown]
  - Blood pressure increased [Recovering/Resolving]
  - Delirium [Unknown]
  - Altered state of consciousness [Unknown]
  - Status epilepticus [Unknown]
  - Hemiparesis [Unknown]
  - Heart rate increased [Unknown]

NARRATIVE: CASE EVENT DATE: 201907
